FAERS Safety Report 21970494 (Version 1)
Quarter: 2023Q1

REPORT INFORMATION
  Report Type: Spontaneous
  Country: US (occurrence: US)
  Receive Date: 20230209
  Receipt Date: 20230209
  Transmission Date: 20230417
  Serious: Yes (Other)
  Sender: FDA-Public Use
  Company Number: US-BAXTER-2023BAX012009

PATIENT
  Age: 51 Year
  Sex: Female

DRUGS (4)
  1. DOXORUBICIN [Suspect]
     Active Substance: DOXORUBICIN
     Indication: Adult T-cell lymphoma/leukaemia stage III
     Dosage: BV-CHP REGIMEN, SIX CYCLES
     Route: 065
  2. CYCLOPHOSPHAMIDE [Suspect]
     Active Substance: CYCLOPHOSPHAMIDE
     Indication: Adult T-cell lymphoma/leukaemia stage III
     Dosage: BV-CHP REGIMEN, SIX CYCLES
     Route: 065
  3. BRENTUXIMAB VEDOTIN [Suspect]
     Active Substance: BRENTUXIMAB VEDOTIN
     Indication: Adult T-cell lymphoma/leukaemia stage III
     Dosage: BV-CHP REGIMEN, SIX CYCLES
     Route: 065
  4. PREDNISONE [Suspect]
     Active Substance: PREDNISONE
     Indication: Adult T-cell lymphoma/leukaemia stage III
     Dosage: BV-CHP REGIMEN, SIX CYCLES
     Route: 065

REACTIONS (6)
  - Paralysis [Unknown]
  - Febrile neutropenia [Unknown]
  - Urosepsis [Not Recovered/Not Resolved]
  - Escherichia sepsis [Not Recovered/Not Resolved]
  - Pneumonia [Unknown]
  - Oral candidiasis [Unknown]
